FAERS Safety Report 5181911-9 (Version None)
Quarter: 2006Q4

REPORT INFORMATION
  Report Type: 
  Country: None (occurrence: None)
  Receive Date: 20061220
  Receipt Date: 20060327
  Transmission Date: 20070319
  Serious: No
  Sender: FDA-Public Use
  Company Number: US-GLAXOSMITHKLINE-A0599108A

PATIENT
  Age: 37 Year
  Sex: Male

DRUGS (1)
  1. COMMIT [Suspect]
     Dates: start: 20060319, end: 20060322

REACTIONS (4)
  - DYSPHONIA [None]
  - MOUTH HAEMORRHAGE [None]
  - MOUTH INJURY [None]
  - PHARYNGOLARYNGEAL PAIN [None]
